FAERS Safety Report 25817938 (Version 1)
Quarter: 2025Q3

REPORT INFORMATION
  Report Type: Spontaneous
  Country: US (occurrence: None)
  Receive Date: 20250918
  Receipt Date: 20250918
  Transmission Date: 20251020
  Serious: Yes (Disabling, Other)
  Sender: FDA-CTU
  Company Number: None

PATIENT
  Age: 39 Year
  Sex: Female
  Weight: 83.25 kg

DRUGS (1)
  1. AJOVY [Suspect]
     Active Substance: FREMANEZUMAB-VFRM
     Indication: Migraine
     Dosage: FREQUENCY : MONTHLY;?
     Route: 030
     Dates: start: 20250701, end: 20250902

REACTIONS (10)
  - Swelling [None]
  - Peripheral swelling [None]
  - Swelling [None]
  - Migraine [None]
  - Chest pain [None]
  - Anxiety [None]
  - Panic attack [None]
  - Musculoskeletal stiffness [None]
  - Hypoaesthesia [None]
  - Hypoaesthesia [None]

NARRATIVE: CASE EVENT DATE: 20250903
